FAERS Safety Report 10664768 (Version 1)
Quarter: 2014Q4

REPORT INFORMATION
  Report Type: Spontaneous
  Country: US (occurrence: None)
  Receive Date: 20141218
  Receipt Date: 20141218
  Transmission Date: 20150529
  Serious: Yes (Hospitalization)
  Sender: FDA-Public Use
  Company Number: None

PATIENT
  Age: 59 Year
  Sex: Male
  Weight: 84 kg

DRUGS (1)
  1. DALBAVANCIN 500 MG DURATA [Suspect]
     Active Substance: DALBAVANCIN
     Indication: STAPHYLOCOCCAL INFECTION
     Route: 042
     Dates: start: 20141111, end: 20141216

REACTIONS (1)
  - Infusion site extravasation [None]

NARRATIVE: CASE EVENT DATE: 20141111
